FAERS Safety Report 7214932-2 (Version None)
Quarter: 2011Q1

REPORT INFORMATION
  Report Type: 
  Country: None (occurrence: None)
  Receive Date: 20110107
  Receipt Date: 20100607
  Transmission Date: 20110831
  Serious: No
  Sender: FDA-Public Use
  Company Number: A0860839A

PATIENT
  Age: 58 Year
  Sex: Male

DRUGS (6)
  1. DOXYCYCLINE [Concomitant]
  2. ACETAMINOPHEN [Concomitant]
  3. LOVAZA [Suspect]
     Dosage: 2CAP TWICE PER DAY
     Route: 048
     Dates: start: 20100501, end: 20100601
  4. ASPIRIN [Concomitant]
  5. ACCUPRIL [Concomitant]
  6. ATENOLOL / CHLORTHAL [Concomitant]

REACTIONS (19)
  - FATIGUE [None]
  - AMNESIA [None]
  - HYPERSOMNIA [None]
  - FURUNCLE [None]
  - WEIGHT DECREASED [None]
  - INFLUENZA LIKE ILLNESS [None]
  - RHINORRHOEA [None]
  - VISUAL IMPAIRMENT [None]
  - ERUCTATION [None]
  - ASTHENIA [None]
  - APHAGIA [None]
  - UPPER RESPIRATORY TRACT CONGESTION [None]
  - RETCHING [None]
  - NAUSEA [None]
  - HYPERPHAGIA [None]
  - HAEMOPTYSIS [None]
  - DECREASED APPETITE [None]
  - BLOOD SODIUM DECREASED [None]
  - BALANCE DISORDER [None]
